FAERS Safety Report 7671019-2 (Version None)
Quarter: 2011Q3

REPORT INFORMATION
  Report Type: 
  Country: None (occurrence: None)
  Receive Date: 20110809
  Receipt Date: 20110804
  Transmission Date: 20111222
  Serious: Yes (Hospitalization)
  Sender: FDA-Public Use
  Company Number: AR-AMGEN-ARGSP2011038912

PATIENT
  Age: 78 Year
  Sex: Male

DRUGS (5)
  1. ZOLOFT [Concomitant]
     Dosage: UNK
  2. LOSARTAN POTASSIUM [Concomitant]
     Dosage: UNK
  3. ENBREL [Suspect]
     Indication: RHEUMATOID ARTHRITIS
     Dosage: 50 MG, WEEKLY
     Route: 058
     Dates: start: 20070208
  4. ENBREL [Suspect]
     Dosage: 50 MG, WEEKLY
     Route: 058
     Dates: start: 20070208, end: 20110701
  5. OMEPRAZOLE [Concomitant]
     Dosage: UNK

REACTIONS (2)
  - ESCHERICHIA INFECTION [None]
  - PRODUCTIVE COUGH [None]
